FAERS Safety Report 12424522 (Version 1)
Quarter: 2016Q2

REPORT INFORMATION
  Report Type: Spontaneous
  Country: US (occurrence: US)
  Receive Date: 20160601
  Receipt Date: 20160601
  Transmission Date: 20160815
  Serious: No
  Sender: FDA-Public Use
  Company Number: US-NOVEN PHARMACEUTICALS, INC.-US2016000132

PATIENT

DRUGS (1)
  1. DAYTRANA [Suspect]
     Active Substance: METHYLPHENIDATE
     Indication: ATTENTION DEFICIT/HYPERACTIVITY DISORDER
     Dosage: 40 MG (USING TWO, 20MG PATCHES TOGETHER), UNKNOWN
     Route: 062

REACTIONS (3)
  - No adverse event [Unknown]
  - Wrong technique in product usage process [Unknown]
  - Overdose [Unknown]
